FAERS Safety Report 7914836-3 (Version None)
Quarter: 2011Q4

REPORT INFORMATION
  Report Type: 
  Country: None (occurrence: None)
  Receive Date: 20111115
  Receipt Date: 20111107
  Transmission Date: 20120403
  Serious: Yes (Hospitalization)
  Sender: FDA-Public Use
  Company Number: US-AMGEN-USASP2011058240

PATIENT
  Age: 62 Year
  Sex: Female

DRUGS (3)
  1. ENBREL [Suspect]
     Indication: PSORIATIC ARTHROPATHY
     Dosage: 50 MG, QWK
     Dates: start: 20091113, end: 20100901
  2. METHOTREXATE [Concomitant]
     Dosage: 1 MG, UNK
     Dates: start: 20040101
  3. ENBREL [Suspect]
     Indication: PSORIASIS

REACTIONS (11)
  - DYSPHAGIA [None]
  - LOSS OF CONSCIOUSNESS [None]
  - DIARRHOEA [None]
  - DEHYDRATION [None]
  - CONTUSION [None]
  - DISTURBANCE IN ATTENTION [None]
  - PSORIATIC ARTHROPATHY [None]
  - RECTOCELE [None]
  - CYSTOCELE [None]
  - PERIORBITAL HAEMATOMA [None]
  - PSORIASIS [None]
